FAERS Safety Report 23842591 (Version 2)
Quarter: 2024Q2

REPORT INFORMATION
  Report Type: Spontaneous
  Country: RO (occurrence: None)
  Receive Date: 20240510
  Receipt Date: 20240524
  Transmission Date: 20240716
  Serious: Yes (Other)
  Sender: FDA-Public Use
  Company Number: 2024A105472

PATIENT
  Age: 51 Year
  Sex: Female

DRUGS (16)
  1. FULVESTRANT [Suspect]
     Active Substance: FULVESTRANT
     Indication: Bone neoplasm
     Dates: start: 202310, end: 202402
  2. FULVESTRANT [Suspect]
     Active Substance: FULVESTRANT
     Indication: Invasive breast carcinoma
     Dates: start: 202310, end: 202402
  3. ANASTROZOLE [Suspect]
     Active Substance: ANASTROZOLE
     Indication: Bone neoplasm
     Dates: start: 201910, end: 202310
  4. ANASTROZOLE [Suspect]
     Active Substance: ANASTROZOLE
     Indication: Invasive breast carcinoma
     Dates: start: 201910, end: 202310
  5. ANASTROZOLE [Suspect]
     Active Substance: ANASTROZOLE
     Indication: Hormone receptor positive breast cancer
     Dates: start: 201910, end: 202310
  6. PALBOCICLIB [Suspect]
     Active Substance: PALBOCICLIB
     Indication: Bone neoplasm
     Dosage: 125 MG 21 DAYS UNKNOWN
     Dates: start: 201910
  7. PALBOCICLIB [Suspect]
     Active Substance: PALBOCICLIB
     Indication: Invasive breast carcinoma
     Dosage: 125 MG 21 DAYS UNKNOWN
     Dates: start: 201910
  8. PALBOCICLIB [Suspect]
     Active Substance: PALBOCICLIB
     Indication: Hormone receptor positive breast cancer
     Dosage: 125 MG 21 DAYS UNKNOWN
     Dates: start: 201910
  9. DENOSUMAB [Suspect]
     Active Substance: DENOSUMAB
     Indication: Bone neoplasm
     Dosage: 120 MG S.C. EVERY 28 DAYS.120.0MG UNKNOWN
     Route: 058
     Dates: start: 202310, end: 202402
  10. DENOSUMAB [Suspect]
     Active Substance: DENOSUMAB
     Indication: Invasive breast carcinoma
     Dosage: 120 MG S.C. EVERY 28 DAYS.120.0MG UNKNOWN
     Route: 058
     Dates: start: 202310, end: 202402
  11. ZOLEDRONIC ACID [Suspect]
     Active Substance: ZOLEDRONIC ACID
     Indication: Invasive breast carcinoma
     Dosage: 4 MG IV AT THREE MONTHS4.0MG UNKNOWN
     Route: 042
  12. ZOLEDRONIC ACID [Suspect]
     Active Substance: ZOLEDRONIC ACID
     Indication: Bone neoplasm
     Dosage: 4 MG IV AT THREE MONTHS4.0MG UNKNOWN
     Route: 042
  13. LETROZOLE [Suspect]
     Active Substance: LETROZOLE
     Indication: Hormone receptor positive breast cancer
     Dates: start: 2022
  14. TAMOXIFEN [Suspect]
     Active Substance: TAMOXIFEN
     Indication: Hormone receptor positive breast cancer
     Dates: start: 2022
  15. VINORELBINE [Suspect]
     Active Substance: VINORELBINE TARTRATE
     Indication: Hormone receptor positive breast cancer
     Dates: start: 2022
  16. DOXORUBICIN [Suspect]
     Active Substance: DOXORUBICIN
     Indication: Hormone receptor positive breast cancer
     Dates: start: 2022

REACTIONS (8)
  - Hepatic cancer [Unknown]
  - Metastases to bone [Unknown]
  - Bone pain [Unknown]
  - Lymphadenopathy mediastinal [Unknown]
  - Carbohydrate antigen 15-3 increased [Unknown]
  - Pulmonary mass [Unknown]
  - Bone lesion [Unknown]
  - Breast mass [Unknown]

NARRATIVE: CASE EVENT DATE: 20230101
